FAERS Safety Report 5220553-3 (Version None)
Quarter: 2007Q1

REPORT INFORMATION
  Report Type: 
  Country: None (occurrence: None)
  Receive Date: 20070126
  Receipt Date: 20070118
  Transmission Date: 20070707
  Serious: Yes (Hospitalization)
  Sender: FDA-Public Use
  Company Number: US-BAYER-200710244BWH

PATIENT
  Age: 65 Year
  Sex: Male
  Weight: 91 kg

DRUGS (12)
  1. SORAFENIB [Suspect]
     Indication: MYELODYSPLASTIC SYNDROME
     Dosage: TOTAL DAILY DOSE: 800 MG  UNIT DOSE: 200 MG
     Route: 048
     Dates: start: 20061218, end: 20070107
  2. AVALIDE [Concomitant]
  3. COREG [Concomitant]
     Dosage: TOTAL DAILY DOSE: 50 MG
  4. CRESTOR [Concomitant]
  5. LASIX [Concomitant]
  6. WELLBUTRIN XL [Concomitant]
     Dosage: TOTAL DAILY DOSE: 300 MG
  7. POTASSIUM CHLORIDE [Concomitant]
     Route: 048
  8. VITAMIN B COMPLEX CAP [Concomitant]
  9. ARANESP [Concomitant]
     Dates: start: 20061211, end: 20061211
  10. VIDAZA [Concomitant]
  11. DACOGEN [Concomitant]
     Dates: start: 20061110, end: 20061114
  12. PROCRIT [Concomitant]
     Dates: start: 20061116, end: 20061116

REACTIONS (4)
  - ABDOMINAL DISTENSION [None]
  - DIARRHOEA [None]
  - GASTROINTESTINAL DISORDER [None]
  - VOMITING [None]
